FAERS Safety Report 7550908-3 (Version None)
Quarter: 2011Q2

REPORT INFORMATION
  Report Type: 
  Country: None (occurrence: None)
  Receive Date: 20110616
  Receipt Date: 20110602
  Transmission Date: 20111010
  Serious: Yes (Other)
  Sender: FDA-Public Use
  Company Number: US-CELGENEUS-163-21660-11061139

PATIENT

DRUGS (4)
  1. BEVACIZUMAB [Suspect]
     Dosage: 15 MILLIGRAM/KILOGRAM
     Route: 065
  2. ABRAXANE [Suspect]
     Dosage: 100 MILLIGRAM/SQ. METER
     Route: 051
  3. BEVACIZUMAB [Suspect]
     Dosage: 15 MILLIGRAM/KILOGRAM
     Route: 065
  4. CARBOPLATIN [Suspect]
     Dosage: AUC 6
     Route: 065

REACTIONS (3)
  - BONE DISORDER [None]
  - DIVERTICULAR PERFORATION [None]
  - LIVER FUNCTION TEST ABNORMAL [None]
